FAERS Safety Report 14712636 (Version 2)
Quarter: 2018Q2

REPORT INFORMATION
  Report Type: Spontaneous
  Country: FR (occurrence: FR)
  Receive Date: 20180404
  Receipt Date: 20180422
  Transmission Date: 20180711
  Serious: Yes (Life-Threatening, Hospitalization, Other)
  Sender: FDA-Public Use
  Company Number: FR-APOTEX-2018AP009546

PATIENT
  Age: 47 Year
  Sex: Female

DRUGS (3)
  1. VALGANCICLOVIR. [Concomitant]
     Active Substance: VALGANCICLOVIR
     Indication: ANTIVIRAL PROPHYLAXIS
     Route: 065
  2. MYCOPHENOLATE [Suspect]
     Active Substance: MYCOPHENOLIC ACID
     Indication: IMMUNOSUPPRESSION
     Route: 065
  3. CYCLOSPORINE. [Suspect]
     Active Substance: CYCLOSPORINE
     Indication: IMMUNOSUPPRESSION
     Route: 065

REACTIONS (6)
  - Haematotoxicity [Recovered/Resolved]
  - Neutropenia [Recovered/Resolved]
  - Pneumonia cytomegaloviral [Recovered/Resolved]
  - Leukopenia [Recovered/Resolved]
  - Septic shock [Unknown]
  - Pseudomonas infection [Unknown]
